FAERS Safety Report 5779911-0 (Version None)
Quarter: 2008Q2

REPORT INFORMATION
  Report Type: 
  Country: None (occurrence: None)
  Receive Date: 20080620
  Receipt Date: 20080609
  Transmission Date: 20081010
  Serious: Yes (Death, Other)
  Sender: FDA-Public Use
  Company Number: NL-BAYER-200820425GPV

PATIENT
  Age: 62 Year
  Sex: Male
  Weight: 85 kg

DRUGS (4)
  1. MABCAMPATH [Suspect]
     Indication: T-CELL DEPLETION
     Route: 042
     Dates: start: 20080123, end: 20080123
  2. FLUDARA [Suspect]
     Indication: BONE MARROW CONDITIONING REGIMEN
     Route: 048
     Dates: start: 20080114, end: 20080119
  3. ANTI-THYMOCYTE GLOBULIN NOS [Suspect]
     Indication: BONE MARROW CONDITIONING REGIMEN
     Route: 042
     Dates: start: 20080120, end: 20080123
  4. BUSULPHAN [Suspect]
     Indication: BONE MARROW CONDITIONING REGIMEN
     Route: 042
     Dates: start: 20080117, end: 20080118

REACTIONS (5)
  - CYTOMEGALOVIRUS INFECTION [None]
  - EPSTEIN-BARR VIRUS INFECTION [None]
  - MULTI-ORGAN FAILURE [None]
  - PNEUMONIA CYTOMEGALOVIRAL [None]
  - POST TRANSPLANT LYMPHOPROLIFERATIVE DISORDER [None]
